FAERS Safety Report 14837243 (Version 1)
Quarter: 2018Q2

REPORT INFORMATION
  Report Type: Report from Study
  Country: US (occurrence: US)
  Receive Date: 20180502
  Receipt Date: 20180502
  Transmission Date: 20180711
  Serious: Yes (Other)
  Sender: FDA-Public Use
  Company Number: US-PFIZER INC-2018180145

PATIENT
  Age: 40 Year
  Sex: Female

DRUGS (3)
  1. XELJANZ [Suspect]
     Active Substance: TOFACITINIB CITRATE
     Dosage: UNK
  2. HUMIRA [Suspect]
     Active Substance: ADALIMUMAB
     Dosage: 40 MG (1 IN 2 WEEK)
     Route: 058
     Dates: end: 201706
  3. HUMIRA [Suspect]
     Active Substance: ADALIMUMAB
     Indication: RHEUMATOID ARTHRITIS
     Dosage: UNK
     Route: 058

REACTIONS (5)
  - Inflammation [Unknown]
  - Myocarditis post infection [Not Recovered/Not Resolved]
  - Pericarditis [Unknown]
  - Drug ineffective [Unknown]
  - Viral myocarditis [Unknown]

NARRATIVE: CASE EVENT DATE: 201706
